FAERS Safety Report 4673436-1 (Version None)
Quarter: 2005Q2

REPORT INFORMATION
  Report Type: 
  Country: None (occurrence: None)
  Receive Date: 20050525
  Receipt Date: 20050524
  Transmission Date: 20051028
  Serious: Yes (Hospitalization)
  Sender: FDA-Public Use
  Company Number: US-GLAXOSMITHKLINE-A0559901A

PATIENT
  Age: 56 Year
  Sex: Female

DRUGS (2)
  1. PAROXETINE [Suspect]
     Indication: MAJOR DEPRESSION
     Dosage: 30MG PER DAY
     Route: 048
  2. COUMADIN [Concomitant]

REACTIONS (2)
  - ANOREXIA [None]
  - COAGULOPATHY [None]
